FAERS Safety Report 9769544 (Version 2)
Quarter: 2013Q4

REPORT INFORMATION
  Report Type: Spontaneous
  Country: US (occurrence: US)
  Receive Date: 20131218
  Receipt Date: 20131218
  Transmission Date: 20140711
  Serious: No
  Sender: FDA-Public Use
  Company Number: US-SHIONOGI, INC-2013000330

PATIENT
  Age: 59 Year
  Sex: Female
  Weight: 59.86 kg

DRUGS (3)
  1. OSPHENA [Suspect]
     Indication: DYSPAREUNIA
     Dosage: 60 MG, QD
     Route: 048
     Dates: start: 20130820, end: 201310
  2. FEMHRT [Concomitant]
     Indication: PROPHYLAXIS
     Dosage: .5/2.5 MG-MCG
     Route: 048
     Dates: start: 20130820, end: 20130916
  3. FEMHRT [Concomitant]
     Indication: MENOPAUSAL SYMPTOMS
     Dosage: 1/5 MG-MCG
     Route: 048
     Dates: start: 20130916

REACTIONS (4)
  - Hypoaesthesia [Recovering/Resolving]
  - Vulvovaginal pain [Recovering/Resolving]
  - Vaginal discharge [Recovering/Resolving]
  - Hot flush [Recovering/Resolving]
